FAERS Safety Report 15340525 (Version 3)
Quarter: 2018Q3

REPORT INFORMATION
  Report Type: Spontaneous
  Country: JP (occurrence: JP)
  Receive Date: 20180831
  Receipt Date: 20180927
  Transmission Date: 20181010
  Serious: Yes (Hospitalization)
  Sender: FDA-Public Use
  Company Number: JP-ASTRAZENECA-2018SF07951

PATIENT
  Age: 14796 Day
  Sex: Male
  Weight: 90 kg

DRUGS (9)
  1. SYMBICORT [Suspect]
     Active Substance: BUDESONIDE\FORMOTEROL FUMARATE DIHYDRATE
     Indication: BRONCHITIS
     Dosage: 2 DOSAGE FORM, TWO TIMES A DAY. AS REQUIRED ADDITIONALLY FOR ATTACKS
     Route: 055
     Dates: start: 20180730, end: 20180807
  2. DIMEMORFAN PHOSPHATE [Suspect]
     Active Substance: DIMEMORFAN PHOSPHATE
     Indication: COUGH
     Route: 048
     Dates: start: 20180730, end: 20180804
  3. SOLU?CORTEF [Concomitant]
     Active Substance: HYDROCORTISONE SODIUM SUCCINATE
     Indication: URTICARIA
     Route: 041
     Dates: start: 20180805, end: 20180805
  4. CALONAL [Suspect]
     Active Substance: ACETAMINOPHEN
     Indication: PYREXIA
     Route: 048
     Dates: start: 20180730, end: 20180804
  5. CLARITHROMYCIN. [Suspect]
     Active Substance: CLARITHROMYCIN
     Indication: COUGH
     Route: 048
     Dates: start: 20180730, end: 20180804
  6. CARBOCISTEINE [Suspect]
     Active Substance: CARBOCYSTEINE
     Indication: COUGH
     Route: 048
     Dates: start: 20180730, end: 20180804
  7. DICLOFENAC [Concomitant]
     Active Substance: DICLOFENAC
     Indication: PYREXIA
     Dosage: 50.0MG AS REQUIRED
     Route: 050
     Dates: start: 20180806
  8. CEFTRIAXONE SODIUM. [Suspect]
     Active Substance: CEFTRIAXONE SODIUM
     Indication: PYREXIA
     Route: 041
     Dates: start: 20180804, end: 20180806
  9. POLARAMINE [Concomitant]
     Active Substance: DEXCHLORPHENIRAMINE MALEATE
     Indication: URTICARIA
     Route: 041
     Dates: start: 20180805, end: 20180805

REACTIONS (5)
  - Pyrexia [Recovered/Resolved]
  - Product use in unapproved indication [Unknown]
  - Erythema multiforme [Recovering/Resolving]
  - Hepatitis acute [Recovering/Resolving]
  - Off label use [Unknown]

NARRATIVE: CASE EVENT DATE: 20180803
